FAERS Safety Report 17803747 (Version 1)
Quarter: 2020Q2

REPORT INFORMATION
  Report Type: Report from Study
  Country: US (occurrence: US)
  Receive Date: 20200519
  Receipt Date: 20200519
  Transmission Date: 20200714
  Serious: Yes (Hospitalization, Other)
  Sender: FDA-Public Use
  Company Number: US-UCBSA-2020018031

PATIENT
  Age: 68 Year
  Sex: Female
  Weight: 66.68 kg

DRUGS (3)
  1. ROTIGOTINE [Suspect]
     Active Substance: ROTIGOTINE
     Indication: RESTLESS LEGS SYNDROME
     Dosage: 2 MG
     Route: 062
     Dates: start: 2018
  2. ROTIGOTINE [Suspect]
     Active Substance: ROTIGOTINE
     Dosage: 4 MG
     Route: 062
     Dates: end: 202004
  3. ROTIGOTINE [Suspect]
     Active Substance: ROTIGOTINE
     Dosage: 6 MILLIGRAM, ONCE DAILY (QD)
     Route: 062
     Dates: start: 202004

REACTIONS (4)
  - Knee arthroplasty [Recovered/Resolved]
  - Hypoaesthesia [Not Recovered/Not Resolved]
  - Intentional product misuse [Unknown]
  - Overdose [Unknown]

NARRATIVE: CASE EVENT DATE: 20191210
